FAERS Safety Report 9888734 (Version 2)
Quarter: 2014Q1

REPORT INFORMATION
  Report Type: Spontaneous
  Country: TR (occurrence: TR)
  Receive Date: 20140211
  Receipt Date: 20140317
  Transmission Date: 20141002
  Serious: Yes (Hospitalization, Other)
  Sender: FDA-Public Use
  Company Number: TR-BRISTOL-MYERS SQUIBB COMPANY-20130001

PATIENT
  Age: 61 Year
  Sex: Female

DRUGS (4)
  1. ONGLYZA TABS [Suspect]
     Indication: TYPE 2 DIABETES MELLITUS
     Route: 048
     Dates: start: 20131105
  2. EXFORGE [Concomitant]
     Dosage: 1 DF 10/60MG
  3. CARDURA XL [Concomitant]
  4. GLICLAZIDE [Concomitant]

REACTIONS (1)
  - Cardiac failure [Recovered/Resolved]
